FAERS Safety Report 19735723 (Version 1)
Quarter: 2021Q3

REPORT INFORMATION
  Report Type: Spontaneous
  Country: FR (occurrence: FR)
  Receive Date: 20210823
  Receipt Date: 20210823
  Transmission Date: 20211014
  Serious: Yes (Hospitalization)
  Sender: FDA-Public Use
  Company Number: FR-PFIZER INC-202101045588

PATIENT
  Age: 27 Year
  Sex: Male

DRUGS (2)
  1. ETOPOSIDE. [Suspect]
     Active Substance: ETOPOSIDE
     Indication: BURKITT^S LYMPHOMA
     Dosage: 400 MG, 1X/DAY
     Route: 041
     Dates: start: 20210607, end: 20210612
  2. ARACYTINE [Suspect]
     Active Substance: CYTARABINE
     Indication: BURKITT^S LYMPHOMA
     Dosage: 6 G, 1X/DAY
     Route: 041
     Dates: start: 20210607, end: 20210612

REACTIONS (3)
  - Rash erythematous [Recovered/Resolved]
  - Skin swelling [Recovered/Resolved]
  - Off label use [Unknown]

NARRATIVE: CASE EVENT DATE: 20210607
